FAERS Safety Report 7320634-4 (Version None)
Quarter: 2011Q1

REPORT INFORMATION
  Report Type: 
  Country: None (occurrence: None)
  Receive Date: 20110228
  Receipt Date: 20110217
  Transmission Date: 20110831
  Serious: Yes (Hospitalization)
  Sender: FDA-Public Use
  Company Number: US-JNJFOC-20110203220

PATIENT
  Sex: Female
  Weight: 10.9 kg

DRUGS (7)
  1. IRON [Suspect]
     Indication: PRODUCT USED FOR UNKNOWN INDICATION
  2. LEUKINE [Concomitant]
  3. MICONAZOLE [Concomitant]
  4. INFLIXIMAB, RECOMBINANT [Suspect]
     Indication: INFLAMMATORY BOWEL DISEASE
     Route: 042
  5. LEUKINE [Concomitant]
  6. PREVACID [Suspect]
     Indication: PRODUCT USED FOR UNKNOWN INDICATION
  7. ANTIBIOTICS [Concomitant]

REACTIONS (4)
  - ROTAVIRUS INFECTION [None]
  - URINE ANALYSIS ABNORMAL [None]
  - CLOSTRIDIAL INFECTION [None]
  - IRON DEFICIENCY ANAEMIA [None]
